FAERS Safety Report 10096695 (Version 2)
Quarter: 2014Q2

REPORT INFORMATION
  Report Type: Report from Study
  Country: DE (occurrence: JP)
  Receive Date: 20140422
  Receipt Date: 20140529
  Transmission Date: 20141212
  Serious: Yes (Death, Hospitalization)
  Sender: FDA-Public Use
  Company Number: JP-FRI-1000066626

PATIENT
  Sex: Male

DRUGS (5)
  1. MEMANTINE (OPEN-LABEL) [Suspect]
     Indication: DEMENTIA ALZHEIMER^S TYPE
     Dosage: 5 MG
     Route: 048
     Dates: start: 20120326, end: 20120408
  2. MEMANTINE (OPEN-LABEL) [Suspect]
     Dosage: 10 MG
     Route: 048
     Dates: start: 20120409, end: 20120506
  3. MEMANTINE (OPEN-LABEL) [Suspect]
     Dosage: 15 MG
     Route: 048
     Dates: start: 20120507, end: 20120603
  4. MEMANTINE (OPEN-LABEL) [Suspect]
     Dosage: 20 MG
     Route: 048
     Dates: start: 20120604, end: 20130819
  5. REMINYL [Concomitant]
     Dates: start: 20111121, end: 20130819

REACTIONS (1)
  - Pneumonia [Fatal]
